FAERS Safety Report 19213838 (Version 2)
Quarter: 2021Q2

REPORT INFORMATION
  Report Type: Spontaneous
  Country: GB (occurrence: GB)
  Receive Date: 20210504
  Receipt Date: 20210520
  Transmission Date: 20210717
  Serious: Yes (Hospitalization, Other)
  Sender: FDA-Public Use
  Company Number: GB-GILEAD-2021-0526804

PATIENT
  Age: 24 Year
  Sex: Male

DRUGS (7)
  1. PULMOZYME [Suspect]
     Active Substance: DORNASE ALFA
     Indication: TRACHEOSTOMY
  2. PULMOZYME [Suspect]
     Active Substance: DORNASE ALFA
     Indication: PNEUMONIA
     Dosage: 2.5 MG, BID
     Route: 050
     Dates: start: 2016
  3. BETHKIS [Suspect]
     Active Substance: TOBRAMYCIN
     Indication: ASTHMA
     Dosage: 300 MG, BID
     Route: 050
  4. PULMOZYME [Suspect]
     Active Substance: DORNASE ALFA
     Indication: DEPENDENCE ON RESPIRATOR
  5. AZTREONAM LYSINE [Suspect]
     Active Substance: AZTREONAM LYSINE
     Indication: PNEUMONIA
     Dosage: 75 MG, TID
     Route: 050
     Dates: start: 202001
  6. AZTREONAM LYSINE [Suspect]
     Active Substance: AZTREONAM LYSINE
     Indication: DEPENDENCE ON RESPIRATOR
  7. AZTREONAM LYSINE [Suspect]
     Active Substance: AZTREONAM LYSINE
     Indication: TRACHEOSTOMY

REACTIONS (3)
  - Skin infection [Unknown]
  - Pneumonia [Recovered/Resolved]
  - Off label use [Unknown]

NARRATIVE: CASE EVENT DATE: 202001
